FAERS Safety Report 4763670-4 (Version None)
Quarter: 2005Q3

REPORT INFORMATION
  Report Type: 
  Country: None (occurrence: None)
  Receive Date: 20050901
  Receipt Date: 20050718
  Transmission Date: 20060218
  Serious: No
  Sender: FDA-Public Use
  Company Number: 200510437BWH

PATIENT
  Age: 80 Year
  Sex: Male

DRUGS (5)
  1. LEVITRA [Suspect]
     Dosage: 10 MG TOTAL DAILY ORAL
     Route: 048
  2. LEVITRA [Suspect]
     Dosage: 20 MG PRN ORAL
     Route: 048
  3. BENAZEPRIL HCL [Concomitant]
  4. HIGH BLOOD PRESSURE MEDICATION [Concomitant]
  5. ALLERGY MEDICATION [Concomitant]

REACTIONS (1)
  - ERECTILE DYSFUNCTION [None]
